FAERS Safety Report 18758671 (Version 2)
Quarter: 2021Q1

REPORT INFORMATION
  Report Type: Spontaneous
  Country: BE (occurrence: BE)
  Receive Date: 20210119
  Receipt Date: 20210204
  Transmission Date: 20210419
  Serious: Yes (Other)
  Sender: FDA-Public Use
  Company Number: BE-TAKEDA-2021TUS002282

PATIENT
  Age: 71 Year
  Sex: Female
  Weight: 115 kg

DRUGS (18)
  1. NINLARO [Suspect]
     Active Substance: IXAZOMIB CITRATE
     Indication: PRODUCT USED FOR UNKNOWN INDICATION
     Dosage: 1 DOSAGE FORM, 1/WEEK
     Route: 065
     Dates: start: 2018
  2. CLOPIXOL (DECANOATE) [Suspect]
     Active Substance: ZUCLOPENTHIXOL DECANOATE
     Indication: PRODUCT USED FOR UNKNOWN INDICATION
     Dosage: 1 DOSAGE FORM, MONTHLY
     Route: 065
  3. ACTRAPID [Concomitant]
     Active Substance: INSULIN HUMAN
     Dosage: UNK UNK, QD
     Route: 065
  4. FOLAVIT [Concomitant]
     Active Substance: FOLIC ACID
     Dosage: UNK UNK, QD
     Route: 065
     Dates: start: 2018
  5. DEXAMETHASONE. [Concomitant]
     Active Substance: DEXAMETHASONE
     Dosage: UNK UNK, 1/WEEK
     Route: 065
     Dates: start: 2018
  6. REVLIMID [Suspect]
     Active Substance: LENALIDOMIDE
     Indication: PRODUCT USED FOR UNKNOWN INDICATION
     Dosage: 1 DOSAGE FORM, QD
     Route: 065
     Dates: start: 2018
  7. L?THYROXINE [LEVOTHYROXINE] [Concomitant]
     Active Substance: LEVOTHYROXINE
     Dosage: UNK
     Route: 065
  8. BACTRIM [Concomitant]
     Active Substance: SULFAMETHOXAZOLE\TRIMETHOPRIM
     Dosage: UNK, 1/WEEK
     Route: 065
     Dates: start: 2018
  9. ACICLOVIR [Concomitant]
     Active Substance: ACYCLOVIR
     Dosage: UNK UNK, QD
     Route: 065
     Dates: start: 2018
  10. QUESTRAN [Concomitant]
     Active Substance: CHOLESTYRAMINE
     Indication: DIARRHOEA
     Dosage: UNK
     Route: 065
     Dates: start: 20200804
  11. KEMADRIN [Concomitant]
     Active Substance: PROCYCLIDINE HYDROCHLORIDE
     Dosage: UNK UNK, QD
     Route: 065
     Dates: start: 2018
  12. LANTUS [Concomitant]
     Active Substance: INSULIN GLARGINE
     Dosage: UNK UNK, QD
     Route: 065
  13. HIZENTRA [Concomitant]
     Active Substance: HUMAN IMMUNOGLOBULIN G
     Dosage: UNK, QD
     Route: 065
     Dates: start: 20200423
  14. INUVAIR [Concomitant]
     Active Substance: BECLOMETHASONE DIPROPIONATE\FORMOTEROL FUMARATE
     Dosage: UNK, QD
     Route: 065
     Dates: start: 20190927
  15. LASIX [Concomitant]
     Active Substance: FUROSEMIDE
     Dosage: 1 DOSAGE FORM, QD
     Route: 065
     Dates: start: 20200709
  16. XARELTO [Concomitant]
     Active Substance: RIVAROXABAN
     Dosage: UNK, QD
     Route: 065
     Dates: start: 20200709
  17. CALCIUM CARBONATE. [Concomitant]
     Active Substance: CALCIUM CARBONATE
     Dosage: UNK, QD
     Route: 065
     Dates: start: 201909
  18. D?CURE [Concomitant]
     Active Substance: CHOLECALCIFEROL
     Dosage: UNK
     Route: 065
     Dates: start: 201808

REACTIONS (12)
  - Dry mouth [Unknown]
  - Dry skin [Unknown]
  - Thirst [Unknown]
  - Skin depigmentation [Unknown]
  - Vision blurred [Unknown]
  - Vomiting [Unknown]
  - Hypoaesthesia [Unknown]
  - Dyskinesia [Unknown]
  - Thrombocytopenia [Unknown]
  - Neutropenia [Unknown]
  - Alopecia [Unknown]
  - Skin discolouration [Unknown]
